FAERS Safety Report 20720650 (Version 2)
Quarter: 2023Q1

REPORT INFORMATION
  Report Type: Spontaneous
  Country: PL (occurrence: PL)
  Receive Date: 20220418
  Receipt Date: 20230310
  Transmission Date: 20230418
  Serious: Yes (Congenital Anomaly, Other)
  Sender: FDA-Public Use
  Company Number: PL-002147023-NVSC2022PL059776

PATIENT
  Sex: Male

DRUGS (1)
  1. FINGOLIMOD [Suspect]
     Active Substance: FINGOLIMOD
     Indication: Product used for unknown indication
     Dosage: UNK, MATERNAL DOSE: UNKNOWN
     Route: 064

REACTIONS (2)
  - Congenital hearing disorder [Unknown]
  - Foetal exposure during pregnancy [Unknown]
